FAERS Safety Report 24259642 (Version 2)
Quarter: 2024Q3

REPORT INFORMATION
  Report Type: Spontaneous
  Country: AT (occurrence: AT)
  Receive Date: 20240828
  Receipt Date: 20240911
  Transmission Date: 20241016
  Serious: Yes (Other)
  Sender: TEVA
  Company Number: AT-TEVA-VS-3236565

PATIENT
  Age: 82 Year
  Sex: Female

DRUGS (10)
  1. DULOXETINE [Suspect]
     Active Substance: DULOXETINE
     Indication: Adjustment disorder with depressed mood
     Dosage: 30 TO 60MG PER DAY
     Route: 065
  2. TELMISARTAN [Concomitant]
     Active Substance: TELMISARTAN
     Indication: Hypertension
  3. BIPERIDEN [Suspect]
     Active Substance: BIPERIDEN
     Indication: Bruxism
     Route: 065
  4. DAPAGLIFLOZIN [Concomitant]
     Active Substance: DAPAGLIFLOZIN
     Indication: Hypertension
  5. LEVOTHYROXINE [Concomitant]
     Active Substance: LEVOTHYROXINE\LEVOTHYROXINE SODIUM
     Indication: Hypothyroidism
  6. AMANTADINE [Suspect]
     Active Substance: AMANTADINE
     Indication: Bruxism
     Route: 065
  7. DENOSUMAB [Concomitant]
     Active Substance: DENOSUMAB
     Indication: Osteoporosis
  8. ROSUVASTATIN [Concomitant]
     Active Substance: ROSUVASTATIN\ROSUVASTATIN CALCIUM
     Indication: Hyperlipidaemia
  9. PREGABALIN [Suspect]
     Active Substance: PREGABALIN
     Indication: Bruxism
     Route: 065
  10. APIXABAN [Concomitant]
     Active Substance: APIXABAN
     Indication: Product used for unknown indication

REACTIONS (8)
  - Drug ineffective [Unknown]
  - Bruxism [Recovered/Resolved]
  - Tardive dyskinesia [Recovering/Resolving]
  - Dysphagia [Recovering/Resolving]
  - Weight decreased [Recovering/Resolving]
  - Pneumonia [Unknown]
  - Aspiration [Unknown]
  - Dyskinesia [Recovering/Resolving]
